FAERS Safety Report 18444447 (Version 4)
Quarter: 2020Q4

REPORT INFORMATION
  Report Type: Report from Study
  Country: None (occurrence: BE)
  Receive Date: 20201030
  Receipt Date: 20201130
  Transmission Date: 20210114
  Serious: Yes (Hospitalization, Other)
  Sender: FDA-Public Use
  Company Number: BE-ABBVIE-20K-013-3628812-00

PATIENT
  Age: 67 Year
  Sex: Male
  Weight: 60 kg

DRUGS (6)
  1. DUODOPA [Suspect]
     Active Substance: CARBIDOPA\LEVODOPA
     Route: 050
     Dates: start: 20201002, end: 20201024
  2. DUODOPA [Suspect]
     Active Substance: CARBIDOPA\LEVODOPA
     Indication: PARKINSON^S DISEASE
     Dosage: UNKNOWN DOSAGES
     Route: 050
     Dates: start: 20150323, end: 20201002
  3. DUODOPA [Suspect]
     Active Substance: CARBIDOPA\LEVODOPA
     Dosage: MD=2.5ML, CD=2.6ML/HR DURING 16HRS, ED=2ML
     Route: 050
     Dates: start: 20201027, end: 20201103
  4. DUODOPA [Suspect]
     Active Substance: CARBIDOPA\LEVODOPA
     Dosage: MD=2.5ML, CD=2.8ML/HR DURING 16HRS, ED=2ML
     Route: 050
     Dates: start: 20201103, end: 20201127
  5. DUODOPA [Suspect]
     Active Substance: CARBIDOPA\LEVODOPA
     Dosage: MD= 2.5 ML, CD= 2.7 ML/HR DURING 16HRS, ED= 2.0 ML
     Route: 050
     Dates: start: 20201127
  6. PROLOPA HBS [Concomitant]
     Active Substance: BENSERAZIDE\LEVODOPA
     Indication: PARKINSON^S DISEASE
     Dosage: FORM STRENGTH: 100MG/25MG; UNIT DOSE: 2 CAPSULES
     Route: 048
     Dates: start: 20201024

REACTIONS (10)
  - Nervousness [Unknown]
  - Unresponsive to stimuli [Unknown]
  - Incorrect product administration duration [Recovered/Resolved]
  - Gait disturbance [Unknown]
  - Muscle rigidity [Unknown]
  - COVID-19 [Not Recovered/Not Resolved]
  - Freezing phenomenon [Unknown]
  - Therapeutic product effect incomplete [Unknown]
  - Dyskinesia [Unknown]
  - Mobility decreased [Unknown]
